FAERS Safety Report 7237921-0 (Version None)
Quarter: 2011Q1

REPORT INFORMATION
  Report Type: 
  Country: None (occurrence: None)
  Receive Date: 20110119
  Receipt Date: 20110119
  Transmission Date: 20110831
  Serious: No
  Sender: FDA-Public Use
  Company Number: None

PATIENT
  Sex: Female
  Weight: 55.3388 kg

DRUGS (3)
  1. RISPERIDONE [Suspect]
     Indication: SCHIZOAFFECTIVE DISORDER
     Dosage: 2-3 MG DAY
     Dates: start: 20091111
  2. GEODON [Suspect]
     Dosage: PRIOR TO 5/2010
  3. ABILIFY [Suspect]
     Dosage: PO
     Route: 048
     Dates: start: 20090501, end: 20091111

REACTIONS (3)
  - TREATMENT NONCOMPLIANCE [None]
  - PRODUCT SUBSTITUTION ISSUE [None]
  - NO THERAPEUTIC RESPONSE [None]
